FAERS Safety Report 15263028 (Version 2)
Quarter: 2018Q3

REPORT INFORMATION
  Report Type: Report from Study
  Country: US (occurrence: US)
  Receive Date: 20180810
  Receipt Date: 20180811
  Transmission Date: 20181010
  Serious: No
  Sender: FDA-Public Use
  Company Number: PHEH2018US032421

PATIENT
  Age: 30 Year
  Sex: Female

DRUGS (1)
  1. GILENYA [Suspect]
     Active Substance: FINGOLIMOD HYDROCHLORIDE
     Indication: PRODUCT USED FOR UNKNOWN INDICATION
     Dosage: UNK
     Route: 048
     Dates: start: 20180719

REACTIONS (3)
  - Chest pain [Recovered/Resolved]
  - Chest discomfort [Recovered/Resolved]
  - Heart rate decreased [Unknown]

NARRATIVE: CASE EVENT DATE: 20180719
